FAERS Safety Report 5258719-9 (Version None)
Quarter: 2007Q1

REPORT INFORMATION
  Report Type: 
  Country: None (occurrence: None)
  Receive Date: 20070305
  Receipt Date: 20070223
  Transmission Date: 20070707
  Serious: Yes (Death)
  Sender: FDA-Public Use
  Company Number: 144-20785-07020931

PATIENT
  Age: 81 Year
  Sex: Female

DRUGS (12)
  1. THALIDOMIDE [Suspect]
     Indication: MULTIPLE MYELOMA
     Dosage: 100 MG, 2 IN 1 D, ORAL
     Route: 048
     Dates: start: 20070116, end: 20070208
  2. VELCADE [Suspect]
     Indication: MULTIPLE MYELOMA
     Dosage: 1.3 MG, INTRAVENOUS
     Route: 042
     Dates: start: 20070116, end: 20070206
  3. PREDNISONE TAB [Suspect]
     Indication: MULTIPLE MYELOMA
  4. CARVEDILOL [Concomitant]
  5. PANTOPRAZOLE SODIUM [Concomitant]
  6. CYANOCOBALAMIN [Concomitant]
  7. ALLOPURINOL [Concomitant]
  8. DARBEPOIETIN ALPHA (DARBEPOIETIN ALPHA) [Concomitant]
  9. FERROUS SULFATE TAB [Concomitant]
  10. BENIPARINE [Concomitant]
  11. FUROSEMIDE [Concomitant]
  12. BETAHISTINE HYDROCHLORIDE (BETAHISTINE HYDROCHLORIDE) [Concomitant]

REACTIONS (2)
  - OEDEMA PERIPHERAL [None]
  - SUDDEN DEATH [None]
